FAERS Safety Report 4843765-7 (Version None)
Quarter: 2005Q4

REPORT INFORMATION
  Report Type: 
  Country: None (occurrence: None)
  Receive Date: 20051129
  Receipt Date: 20051115
  Transmission Date: 20060501
  Serious: Yes (Hospitalization)
  Sender: FDA-Public Use
  Company Number: 218836

PATIENT
  Age: 55 Year
  Sex: Female

DRUGS (2)
  1. HERCEPTIN [Suspect]
     Indication: BREAST CANCER
     Dosage: Q3W, INTRAVENOUS
     Route: 042
     Dates: start: 20040726, end: 20050819
  2. ZOLEDRONIC ACID (ZOLEDRONIC ACID) [Concomitant]

REACTIONS (2)
  - COORDINATION ABNORMAL [None]
  - EPILEPSY [None]
